FAERS Safety Report 23314587 (Version 5)
Quarter: 2025Q2

REPORT INFORMATION
  Report Type: Spontaneous
  Country: JP (occurrence: JP)
  Receive Date: 20231219
  Receipt Date: 20250408
  Transmission Date: 20250716
  Serious: Yes (Hospitalization, Other)
  Sender: BRISTOL MYERS SQUIBB
  Company Number: JP-BRISTOL-MYERS SQUIBB COMPANY-2023-182907

PATIENT
  Age: 81 Year
  Sex: Male

DRUGS (2)
  1. YERVOY [Suspect]
     Active Substance: IPILIMUMAB
     Indication: Oesophageal carcinoma
     Dosage: TOTAL ADMINISTRATION NUMBER:2 TIMES
     Route: 041
     Dates: start: 202303, end: 202306
  2. OPDIVO [Suspect]
     Active Substance: NIVOLUMAB
     Indication: Oesophageal carcinoma
     Dosage: TOTAL ADMINISTRATION NUMBER:4 TIMES
     Route: 041
     Dates: start: 202303, end: 202308

REACTIONS (3)
  - Immune-mediated adrenal insufficiency [Recovering/Resolving]
  - Polymyalgia rheumatica [Recovering/Resolving]
  - Acquired tracheo-oesophageal fistula [Unknown]

NARRATIVE: CASE EVENT DATE: 20230601
